FAERS Safety Report 8016548-7 (Version None)
Quarter: 2011Q4

REPORT INFORMATION
  Report Type: 
  Country: None (occurrence: None)
  Receive Date: 20111230
  Receipt Date: 20111227
  Transmission Date: 20120403
  Serious: No
  Sender: FDA-Public Use
  Company Number: US-BAYER-2011-124496

PATIENT
  Age: 18 Year
  Sex: Male

DRUGS (2)
  1. ALEVE (CAPLET) [Suspect]
     Dosage: UNK
     Dates: start: 20111225
  2. FOCALIN [Concomitant]

REACTIONS (2)
  - MOTOR DYSFUNCTION [None]
  - TIC [None]
